FAERS Safety Report 8537442-9 (Version None)
Quarter: 2012Q3

REPORT INFORMATION
  Report Type: 
  Country: None (occurrence: None)
  Receive Date: 20120725
  Receipt Date: 20120719
  Transmission Date: 20120928
  Serious: Yes (Other)
  Sender: FDA-Public Use
  Company Number: US-ABBOTT-12P-163-0959002-00

PATIENT
  Sex: Female
  Weight: 52.664 kg

DRUGS (8)
  1. ASPIRIN [Concomitant]
     Indication: PRODUCT USED FOR UNKNOWN INDICATION
  2. NIFEDIPINE [Suspect]
     Indication: HYPERTENSION
  3. HUMIRA [Suspect]
     Indication: PUSTULAR PSORIASIS
     Dates: start: 20120601, end: 20120601
  4. ATENOLOL [Suspect]
     Indication: CARDIOMYOPATHY
     Dates: end: 20120301
  5. LISINOPRIL [Concomitant]
     Indication: HYPERTENSION
  6. HUMIRA [Suspect]
     Dates: start: 20120601, end: 20120601
  7. OMEPRAZOLE [Concomitant]
     Indication: PRODUCT USED FOR UNKNOWN INDICATION
  8. HYDROCHLOROTHIAZIDE [Concomitant]
     Indication: HYPERTENSION

REACTIONS (6)
  - OEDEMA PERIPHERAL [None]
  - LEFT VENTRICULAR FAILURE [None]
  - VEIN DISORDER [None]
  - AORTIC ANEURYSM [None]
  - CARDIAC FAILURE CONGESTIVE [None]
  - DERMATITIS EXFOLIATIVE [None]
